FAERS Safety Report 5025850-2 (Version None)
Quarter: 2006Q2

REPORT INFORMATION
  Report Type: 
  Country: None (occurrence: None)
  Receive Date: 20060614
  Receipt Date: 20060606
  Transmission Date: 20061013
  Serious: Yes (Other)
  Sender: FDA-Public Use
  Company Number: US-AVENTIS-200615006US

PATIENT
  Age: 74 Year
  Sex: Female

DRUGS (4)
  1. LANTUS [Suspect]
     Indication: DIABETES MELLITUS NON-INSULIN-DEPENDENT
     Dosage: DOSE UNIT: UNITS
     Route: 051
     Dates: start: 20030101, end: 20060606
  2. LANTUS [Suspect]
     Dosage: DOSE UNIT: UNITS
     Route: 051
     Dates: start: 20060606
  3. AMARYL [Concomitant]
     Dosage: DOSE: UNKNOWN
  4. ANTIHYPERTENSIVES [Concomitant]
     Dosage: DOSE: UNKNOWN

REACTIONS (3)
  - BLOOD GLUCOSE INCREASED [None]
  - CIRCUMSTANCE OR INFORMATION CAPABLE OF LEADING TO MEDICATION ERROR [None]
  - NECROSIS [None]
